FAERS Safety Report 5256378-2 (Version None)
Quarter: 2007Q1

REPORT INFORMATION
  Report Type: 
  Country: None (occurrence: None)
  Receive Date: 20070306
  Receipt Date: 20070222
  Transmission Date: 20070707
  Serious: Yes (Death, Hospitalization)
  Sender: FDA-Public Use
  Company Number: SE-ROCHE-482867

PATIENT
  Age: 49 Year
  Sex: Male

DRUGS (10)
  1. CYMEVENE [Suspect]
     Indication: CYTOMEGALOVIRUS GASTROINTESTINAL INFECTION
     Dosage: FORM REPORTED AS POWDER FOR SOLUTION FOR INFUSION. DOSAGE REGIMEN REPORTED AS 175 MG X 1. DOSE WAS +
     Route: 042
     Dates: start: 20050720, end: 20050721
  2. CYMEVENE [Suspect]
     Dosage: DOSAGE REGIMEN REPORTED AS 175 MG X 1.
     Route: 042
     Dates: start: 20050701, end: 20050704
  3. CYMEVENE [Suspect]
     Dosage: DOSAGE REGIMEN REPORTED AS 175 MG X 2. DOSE WAS INCREASED.
     Route: 042
     Dates: start: 20050705, end: 20050719
  4. BACTRIM [Concomitant]
  5. MABTHERA [Concomitant]
     Dates: start: 20050708
  6. CIPROFLOXACIN [Concomitant]
     Dosage: DRUG REPORTED AS CIPROFLOXACIN HEXAL.
  7. DIFLUCAN [Concomitant]
  8. PRECORTALON [Concomitant]
     Dosage: DRUG REPORTED AS PRECORTALON AQUOSUM.
  9. SANDIMMUNE [Concomitant]
  10. AMBISOME [Concomitant]
     Dates: start: 20050729

REACTIONS (4)
  - ASPERGILLOSIS [None]
  - ESCHERICHIA INFECTION [None]
  - GASTROINTESTINAL HAEMORRHAGE [None]
  - RENAL FAILURE [None]
